FAERS Safety Report 16908661 (Version 2)
Quarter: 2020Q1

REPORT INFORMATION
  Report Type: Report from Study
  Country: JP (occurrence: JP)
  Receive Date: 20191011
  Receipt Date: 20200129
  Transmission Date: 20200409
  Serious: Yes (Hospitalization, Other)
  Sender: FDA-Public Use
  Company Number: JP-BIOGEN-2019BI00794292

PATIENT
  Age: 3 Year
  Sex: Female
  Weight: 10.4 kg

DRUGS (7)
  1. XYLOCAINE [Concomitant]
     Active Substance: LIDOCAINE HYDROCHLORIDE
     Route: 050
     Dates: start: 20190820, end: 20190820
  2. SPINRAZA [Suspect]
     Active Substance: NUSINERSEN
     Route: 050
     Dates: start: 20190820, end: 20190820
  3. XYLOCAINE [Concomitant]
     Active Substance: LIDOCAINE HYDROCHLORIDE
     Indication: ANAESTHESIA PROCEDURE
     Route: 050
     Dates: start: 20190416, end: 20190416
  4. XYLOCAINE [Concomitant]
     Active Substance: LIDOCAINE HYDROCHLORIDE
     Route: 058
     Dates: start: 20191217, end: 20191217
  5. VIMPAT [Concomitant]
     Active Substance: LACOSAMIDE
     Indication: EPILEPSY
     Route: 050
  6. SPINRAZA [Suspect]
     Active Substance: NUSINERSEN
     Route: 050
     Dates: start: 20191217, end: 20191217
  7. SPINRAZA [Suspect]
     Active Substance: NUSINERSEN
     Indication: SPINAL MUSCULAR ATROPHY
     Route: 050
     Dates: start: 20190416, end: 20190416

REACTIONS (2)
  - Status epilepticus [Recovered/Resolved]
  - Epilepsy [Recovered/Resolved]

NARRATIVE: CASE EVENT DATE: 20190904
